FAERS Safety Report 8519936 (Version 14)
Quarter: 2013Q3

REPORT INFORMATION
  Report Type: Spontaneous
  Country: US (occurrence: US)
  Receive Date: 20120418
  Receipt Date: 20130723
  Transmission Date: 20140515
  Serious: Yes (Other)
  Sender: FDA-Public Use
  Company Number: US-ASTRAZENECA-2011SE41535

PATIENT
  Age: 48 Year
  Sex: Female
  Weight: 69.9 kg

DRUGS (51)
  1. NEXIUM [Suspect]
     Indication: GASTROOESOPHAGEAL REFLUX DISEASE
     Route: 048
     Dates: start: 200112, end: 200307
  2. NEXIUM [Suspect]
     Indication: GASTROOESOPHAGEAL REFLUX DISEASE
     Route: 048
     Dates: start: 20020405
  3. NEXIUM [Suspect]
     Indication: GASTROOESOPHAGEAL REFLUX DISEASE
     Route: 048
     Dates: start: 2003, end: 2011
  4. NEXIUM [Suspect]
     Indication: GASTROOESOPHAGEAL REFLUX DISEASE
     Route: 048
     Dates: start: 2009, end: 201105
  5. NEXIUM [Suspect]
     Indication: GASTROOESOPHAGEAL REFLUX DISEASE
     Route: 048
     Dates: start: 20090514
  6. NEXIUM [Suspect]
     Indication: GASTROOESOPHAGEAL REFLUX DISEASE
     Route: 048
     Dates: start: 2010
  7. PRILOSEC [Suspect]
     Route: 048
     Dates: start: 2008, end: 2009
  8. PROTONIX [Concomitant]
     Dates: start: 20081201
  9. PEPCID [Concomitant]
     Dates: start: 20020516
  10. PEPCID [Concomitant]
     Dates: start: 2006
  11. VITAMIN D [Concomitant]
     Indication: VITAMIN D DEFICIENCY
  12. OSCAL [Concomitant]
     Indication: CALCIUM DEFICIENCY
     Dosage: 500/200 D-3
     Dates: start: 2010
  13. IMITREX [Concomitant]
     Indication: MIGRAINE
  14. IMITREX [Concomitant]
     Indication: MIGRAINE
     Dates: start: 2006
  15. COMPAZINE [Concomitant]
  16. HYDROCLORAZAZIDE/HCTZ [Concomitant]
     Indication: BLOOD PRESSURE
  17. HYDROCLORAZAZIDE/HCTZ [Concomitant]
     Indication: BLOOD PRESSURE
     Dates: start: 20020516
  18. TOMARADOLE HCL [Concomitant]
  19. CERALAFATE [Concomitant]
     Dates: start: 2010
  20. KADOR [Concomitant]
  21. OMEGA-3 SUPPLEMENT [Concomitant]
  22. NIZATIDIZINE/AXID [Concomitant]
  23. ZOFREN [Concomitant]
  24. ZYRTEC [Concomitant]
     Indication: MULTIPLE ALLERGIES
     Dates: start: 20070106
  25. POTASSIUM CHLORIDE/K DUR [Concomitant]
     Dosage: 10 TO 100 MEQ
     Dates: start: 20020315
  26. PROPO N/APAP/DARVOCET [Concomitant]
     Dosage: 100-650
     Dates: start: 20020328
  27. PROPO N/APAP/DARVOCET [Concomitant]
     Dates: start: 2006
  28. CYCLOBENZAR [Concomitant]
  29. NIFEDIPINE [Concomitant]
  30. SUDAFED [Concomitant]
     Dates: start: 2006
  31. MVI/MULTIVITAMINES [Concomitant]
     Dates: start: 20030503
  32. ARTHROTEC [Concomitant]
     Dates: start: 2006
  33. LYRICA [Concomitant]
     Dates: start: 20070102
  34. LYRICA [Concomitant]
     Dates: start: 20090519
  35. LYRICA [Concomitant]
     Dates: start: 2010
  36. TOPOROL XL [Concomitant]
     Dates: start: 20090519
  37. TOPOROL XL [Concomitant]
     Dates: start: 2010
  38. FISH OIL [Concomitant]
     Dates: start: 2010
  39. FOLIC ACID [Concomitant]
     Dates: start: 2010
  40. GLYSET [Concomitant]
     Dates: start: 20070102
  41. LACTULOSE [Concomitant]
     Dates: start: 2010
  42. BISACODYL [Concomitant]
     Dates: start: 20090519
  43. BONIVA [Concomitant]
     Dates: start: 20070131
  44. BONIVA [Concomitant]
     Dates: start: 20090519
  45. HYDROXYZINE HCL [Concomitant]
     Dates: start: 20090519
  46. FLEXERIL [Concomitant]
     Dates: start: 20051206
  47. VOLTAREN [Concomitant]
     Dates: start: 20051206
  48. ANCEF [Concomitant]
     Dates: start: 200507
  49. FOLATE [Concomitant]
     Dates: start: 20030502
  50. PROPOXYPHENE NAPSYLATE [Concomitant]
     Dosage: 100-650
     Dates: start: 20070102
  51. PREDNISONE [Concomitant]
     Dosage: 10-20 MG
     Dates: start: 20070106

REACTIONS (14)
  - Lumbar radiculopathy [Unknown]
  - Haematemesis [Unknown]
  - Osteoporosis [Unknown]
  - Back pain [Unknown]
  - Calcium deficiency [Unknown]
  - Vitamin D deficiency [Unknown]
  - Multiple fractures [Unknown]
  - Intervertebral disc degeneration [Unknown]
  - Intervertebral disc protrusion [Unknown]
  - Osteopenia [Unknown]
  - Intervertebral disc displacement [Unknown]
  - Spinal osteoarthritis [Unknown]
  - Vomiting [Unknown]
  - Nausea [Unknown]
